FAERS Safety Report 19780415 (Version 1)
Quarter: 2021Q3

REPORT INFORMATION
  Report Type: Spontaneous
  Country: CA (occurrence: CA)
  Receive Date: 20210902
  Receipt Date: 20210902
  Transmission Date: 20211014
  Serious: Yes (Life-Threatening, Hospitalization, Other)
  Sender: FDA-Public Use
  Company Number: CA-TEVA-2021-CA-1947367

PATIENT
  Age: 4 Year
  Sex: Female
  Weight: 15 kg

DRUGS (8)
  1. MESNA. [Concomitant]
     Active Substance: MESNA
  2. ETOPOSIDE. [Concomitant]
     Active Substance: ETOPOSIDE
  3. SEPTRA [Concomitant]
     Active Substance: SULFAMETHOXAZOLE\TRIMETHOPRIM
  4. CARBOPLATIN. [Suspect]
     Active Substance: CARBOPLATIN
     Route: 042
  5. GRANULOCYTE COLONY STIMULATING FACTOR (G?CSF) [Concomitant]
     Active Substance: GRANULOCYTE COLONY-STIMULATING FACTOR NOS
  6. ONDANSETRON [Concomitant]
     Active Substance: ONDANSETRON
  7. IFOSFAMIDE FOR INJECTION, USP [Suspect]
     Active Substance: IFOSFAMIDE
     Indication: BRAIN NEOPLASM
     Route: 042
  8. EMEND [Concomitant]
     Active Substance: APREPITANT

REACTIONS (2)
  - Febrile neutropenia [Unknown]
  - SARS-CoV-2 test negative [Unknown]
